FAERS Safety Report 8066082-3 (Version None)
Quarter: 2012Q2

REPORT INFORMATION
  Report Type: 
  Country: None (occurrence: None)
  Receive Date: 20120124
  Receipt Date: 20120113
  Transmission Date: 20120825
  Serious: Yes (Other)
  Sender: FDA-Public Use
  Company Number: FR-ROCHE-1020891

PATIENT
  Sex: Male
  Weight: 71 kg

DRUGS (5)
  1. PEGINTERFERON ALFA-2A [Suspect]
     Indication: HEPATITIS C
     Dosage: RECENT DOSE OF PEGASYS PRIOR TO AE 06 DEC 2011
     Route: 058
  2. RITONAVIR [Suspect]
     Indication: HEPATITIS C
     Dosage: RECENT DOSE PRIOR TO AE ONSET 08 DEC 2011
     Route: 048
     Dates: start: 20110906
  3. COPEGUS [Suspect]
     Indication: HEPATITIS C
     Dosage: RECENT DOSE PRIOR TO AE ONSET 08 DEC 2011
     Route: 048
  4. RO 5024048 (HCV POLYMERASE INHIBITOR) [Suspect]
     Indication: HEPATITIS C
     Dosage: RECENT DOSE PRIOR TO AE ONSET 08 DEC 2011
     Route: 048
  5. RO 5190591 (HCV PROTEASE INHIBITOR) [Suspect]
     Indication: HEPATITIS C
     Dosage: RECENT DOSE OF DANOPREVIR PRIOR TO AE ONSET 08 DEC 2011
     Route: 048
     Dates: start: 20110906

REACTIONS (1)
  - PORPHYRIA NON-ACUTE [None]
